FAERS Safety Report 9728253 (Version 3)
Quarter: 2014Q1

REPORT INFORMATION
  Report Type: Spontaneous
  Country: US (occurrence: US)
  Receive Date: 20131204
  Receipt Date: 20140217
  Transmission Date: 20141002
  Serious: No
  Sender: FDA-Public Use
  Company Number: US-JNJFOC-20131107768

PATIENT
  Age: 3 Decade
  Sex: Male

DRUGS (2)
  1. INVEGA SUSTENNA [Suspect]
     Indication: SCHIZOPHRENIA
     Route: 030
     Dates: start: 201301, end: 201308
  2. INVEGA SUSTENNA [Suspect]
     Indication: SCHIZOPHRENIA
     Route: 030
     Dates: start: 201309

REACTIONS (4)
  - Therapeutic response decreased [Unknown]
  - Erectile dysfunction [Unknown]
  - Libido decreased [Unknown]
  - Blood prolactin increased [Unknown]
